FAERS Safety Report 14726952 (Version 5)
Quarter: 2021Q2

REPORT INFORMATION
  Report Type: Report from Study
  Country: GB (occurrence: US)
  Receive Date: 20180406
  Receipt Date: 20210422
  Transmission Date: 20210716
  Serious: Yes (Hospitalization, Other)
  Sender: FDA-Public Use
  Company Number: US-ASTELLAS-2018US016719

PATIENT
  Age: 64 Year
  Sex: Female
  Weight: 54 kg

DRUGS (3)
  1. ERLOTINIB [Suspect]
     Active Substance: ERLOTINIB
     Indication: LUNG NEOPLASM MALIGNANT
     Route: 048
  2. ERLOTINIB [Suspect]
     Active Substance: ERLOTINIB
     Indication: NEOPLASM MALIGNANT
     Route: 048
     Dates: start: 20180310, end: 20180321
  3. ERLOTINIB [Suspect]
     Active Substance: ERLOTINIB
     Route: 048

REACTIONS (12)
  - Skin reaction [Unknown]
  - Drug hypersensitivity [Not Recovered/Not Resolved]
  - Pruritus [Unknown]
  - Nausea [Recovered/Resolved]
  - Erythema [Unknown]
  - Skin ulcer [Unknown]
  - Feeling hot [Unknown]
  - Vomiting [Recovered/Resolved]
  - Feeling abnormal [Unknown]
  - Neoplasm progression [Unknown]
  - Diarrhoea [Recovered/Resolved]
  - Eye pruritus [Unknown]

NARRATIVE: CASE EVENT DATE: 201803
